FAERS Safety Report 8272776-7 (Version None)
Quarter: 2012Q2

REPORT INFORMATION
  Report Type: 
  Country: None (occurrence: None)
  Receive Date: 20120411
  Receipt Date: 20120403
  Transmission Date: 20120825
  Serious: Yes (Hospitalization)
  Sender: FDA-Public Use
  Company Number: US-BIOGENIDEC-2011BI009639

PATIENT
  Sex: Female

DRUGS (2)
  1. AVONEX [Suspect]
     Indication: MULTIPLE SCLEROSIS
     Route: 030
     Dates: start: 20010207, end: 20051101
  2. AVONEX [Suspect]
     Route: 030
     Dates: start: 20091118

REACTIONS (3)
  - MULTIPLE SCLEROSIS RELAPSE [None]
  - BLADDER CATHETERISATION [None]
  - BRAIN OPERATION [None]
